FAERS Safety Report 20936343 (Version 1)
Quarter: 2022Q2

REPORT INFORMATION
  Report Type: Spontaneous
  Country: US (occurrence: None)
  Receive Date: 20220609
  Receipt Date: 20220609
  Transmission Date: 20220720
  Serious: No
  Sender: FDA-Public Use
  Company Number: US-ROCHE-2865073

PATIENT
  Age: 83 Year
  Sex: Female

DRUGS (2)
  1. ACTEMRA [Suspect]
     Active Substance: TOCILIZUMAB
     Indication: Product used for unknown indication
     Dosage: 162MG/0.9ML
     Route: 058
     Dates: start: 202107
  2. ACTEMRA [Suspect]
     Active Substance: TOCILIZUMAB

REACTIONS (4)
  - Gait disturbance [Unknown]
  - Blood pressure increased [Unknown]
  - Muscle spasms [Unknown]
  - No adverse event [Unknown]

NARRATIVE: CASE EVENT DATE: 20210705
